FAERS Safety Report 7182723-7 (Version None)
Quarter: 2010Q4

REPORT INFORMATION
  Report Type: 
  Country: None (occurrence: None)
  Receive Date: 20101221
  Receipt Date: 20100608
  Transmission Date: 20110411
  Serious: Yes (Other)
  Sender: FDA-Public Use
  Company Number: US-AMGEN-KDL410324

PATIENT

DRUGS (3)
  1. ENBREL [Suspect]
     Indication: PSORIASIS
     Dosage: 50 MG, QWK
     Route: 058
     Dates: start: 20090512, end: 20100504
  2. TRIAMCINOLONE ACETONIDE [Concomitant]
     Dosage: .5 %, UNK
     Dates: start: 20100330
  3. TOPICORTE [Concomitant]
     Dosage: UNK UNK, UNK
     Route: 061
     Dates: start: 20100330

REACTIONS (3)
  - DIZZINESS [None]
  - EAR CONGESTION [None]
  - OPTIC NEURITIS [None]
